FAERS Safety Report 17531932 (Version 1)
Quarter: 2020Q1

REPORT INFORMATION
  Report Type: Spontaneous
  Country: US (occurrence: US)
  Receive Date: 20200311
  Receipt Date: 20200311
  Transmission Date: 20200409
  Serious: Yes (Hospitalization)
  Sender: FDA-Public Use
  Company Number: US-ANIPHARMA-2020-US-004246

PATIENT
  Age: 21 Year
  Sex: Male

DRUGS (1)
  1. SULFAMETHOXAZOLE + TRIMETHOPRIM (NON-SPECIFIC) [Suspect]
     Active Substance: SULFAMETHOXAZOLE\TRIMETHOPRIM
     Indication: PENILE DISCHARGE

REACTIONS (2)
  - Hepatic encephalopathy [Recovered/Resolved]
  - Drug reaction with eosinophilia and systemic symptoms [Recovered/Resolved]
